FAERS Safety Report 14970379 (Version 1)
Quarter: 2018Q2

REPORT INFORMATION
  Report Type: Spontaneous
  Country: US (occurrence: US)
  Receive Date: 20180604
  Receipt Date: 20180604
  Transmission Date: 20180711
  Serious: No
  Sender: FDA-Public Use
  Company Number: US-ALLERGAN-1773728US

PATIENT
  Age: 20 Year
  Sex: Female

DRUGS (2)
  1. KYBELLA [Suspect]
     Active Substance: DEOXYCHOLIC ACID
     Indication: FAT TISSUE INCREASED
     Dosage: 11 ML, SINGLE
     Route: 058
     Dates: start: 20161220, end: 20161220
  2. KYBELLA [Suspect]
     Active Substance: DEOXYCHOLIC ACID
     Dosage: 3 ML, SINGLE
     Route: 058
     Dates: start: 20170710, end: 20170710

REACTIONS (2)
  - Drug ineffective [Unknown]
  - Weight increased [Recovered/Resolved]
